FAERS Safety Report 11980565 (Version 2)
Quarter: 2016Q1

REPORT INFORMATION
  Report Type: Spontaneous
  Country: DE (occurrence: DE)
  Receive Date: 20160129
  Receipt Date: 20160202
  Transmission Date: 20160526
  Serious: Yes (Other)
  Sender: FDA-Public Use
  Company Number: DE-PFIZER INC-2016044466

PATIENT
  Age: 33 Year
  Sex: Female
  Weight: 44 kg

DRUGS (1)
  1. PREGABALIN. [Suspect]
     Active Substance: PREGABALIN
     Indication: MUSCLE SPASMS
     Dosage: 25 MG, UNK
     Route: 048
     Dates: start: 20160122

REACTIONS (5)
  - Hypoaesthesia [Unknown]
  - Headache [Unknown]
  - Respiratory distress [Unknown]
  - Tongue oedema [Unknown]
  - Throat tightness [Unknown]

NARRATIVE: CASE EVENT DATE: 20160123
